FAERS Safety Report 12777416 (Version 2)
Quarter: 2025Q1

REPORT INFORMATION
  Report Type: Report from Study
  Country: US (occurrence: US)
  Receive Date: 20160924
  Receipt Date: 20250221
  Transmission Date: 20250409
  Serious: Yes (Hospitalization, Other)
  Sender: AMGEN
  Company Number: US-AMGEN-USASL2016126492

PATIENT
  Age: 46 Year
  Sex: Female

DRUGS (3)
  1. ENBREL [Suspect]
     Active Substance: ETANERCEPT
     Indication: Rheumatoid arthritis
     Dosage: 50 MILLIGRAM, QWK
     Route: 065
  2. ENBREL [Suspect]
     Active Substance: ETANERCEPT
     Dosage: 50 MILLIGRAM, QWK
     Route: 065
  3. METHOTREXATE [Concomitant]
     Active Substance: METHOTREXATE

REACTIONS (25)
  - Gallbladder operation [Unknown]
  - Pancreatolithiasis [Unknown]
  - Renal disorder [Unknown]
  - Cataract [Not Recovered/Not Resolved]
  - Fall [Unknown]
  - Loss of consciousness [Not Recovered/Not Resolved]
  - Upper limb fracture [Unknown]
  - Rib fracture [Unknown]
  - Liver disorder [Unknown]
  - Myocardial infarction [Unknown]
  - Therapeutic product effect incomplete [Unknown]
  - Injection site pain [Unknown]
  - Decreased immune responsiveness [Unknown]
  - Feeling abnormal [Unknown]
  - Ill-defined disorder [Unknown]
  - Hyperhidrosis [Unknown]
  - Vertigo [Unknown]
  - Tremor [Unknown]
  - Cerebral disorder [Unknown]
  - Psychomotor hyperactivity [Unknown]
  - Memory impairment [Unknown]
  - Loss of personal independence in daily activities [Not Recovered/Not Resolved]
  - Eye disorder [Not Recovered/Not Resolved]
  - Pain [Unknown]
  - Depression [Unknown]

NARRATIVE: CASE EVENT DATE: 20150101
